FAERS Safety Report 25390566 (Version 1)
Quarter: 2025Q2

REPORT INFORMATION
  Report Type: Spontaneous
  Country: US (occurrence: US)
  Receive Date: 20250603
  Receipt Date: 20250603
  Transmission Date: 20250717
  Serious: No
  Sender: PFIZER
  Company Number: US-PFIZER INC-PV202500065332

PATIENT
  Age: 15 Year
  Sex: Male

DRUGS (4)
  1. LITFULO [Suspect]
     Active Substance: RITLECITINIB TOSYLATE
     Indication: Alopecia areata
     Dates: start: 2023
  2. RETINOL [Concomitant]
     Active Substance: RETINOL
     Dosage: DAILY
  3. VITAMIN D NOS [Concomitant]
     Active Substance: CHOLECALCIFEROL\ERGOCALCIFEROL
     Indication: Vitamin D deficiency
     Dosage: DAILY
  4. CLOBETASOL [Concomitant]
     Active Substance: CLOBETASOL
     Dosage: EVERY OTHER DAY
     Route: 061
     Dates: start: 20241224

REACTIONS (1)
  - Hair texture abnormal [Unknown]
